FAERS Safety Report 15092716 (Version 1)
Quarter: 2018Q2

REPORT INFORMATION
  Report Type: Spontaneous
  Country: DE (occurrence: DE)
  Receive Date: 20180629
  Receipt Date: 20180629
  Transmission Date: 20180711
  Serious: Yes (Death, Life-Threatening, Hospitalization)
  Sender: FDA-Public Use
  Company Number: DE-JNJFOC-20180630685

PATIENT
  Age: 68 Year
  Sex: Male

DRUGS (16)
  1. RISPERIDONE. [Suspect]
     Active Substance: RISPERIDONE
     Indication: FRONTOTEMPORAL DEMENTIA
     Route: 048
     Dates: start: 20171123, end: 20171123
  2. HALOPERIDOL. [Suspect]
     Active Substance: HALOPERIDOL
     Indication: FRONTOTEMPORAL DEMENTIA
     Route: 048
     Dates: start: 20171114, end: 20171114
  3. HALOPERIDOL. [Suspect]
     Active Substance: HALOPERIDOL
     Indication: FRONTOTEMPORAL DEMENTIA
     Route: 048
     Dates: start: 20171121, end: 20171121
  4. RISPERIDONE. [Suspect]
     Active Substance: RISPERIDONE
     Indication: FRONTOTEMPORAL DEMENTIA
     Route: 048
     Dates: start: 20171124, end: 20171124
  5. HALOPERIDOL. [Suspect]
     Active Substance: HALOPERIDOL
     Indication: FRONTOTEMPORAL DEMENTIA
     Route: 048
     Dates: start: 20171108, end: 20171108
  6. HALOPERIDOL. [Suspect]
     Active Substance: HALOPERIDOL
     Indication: FRONTOTEMPORAL DEMENTIA
     Route: 048
     Dates: start: 20171117, end: 20171119
  7. HALOPERIDOL. [Suspect]
     Active Substance: HALOPERIDOL
     Indication: FRONTOTEMPORAL DEMENTIA
     Route: 048
     Dates: start: 20171124, end: 20171124
  8. RISPERIDONE. [Suspect]
     Active Substance: RISPERIDONE
     Indication: FRONTOTEMPORAL DEMENTIA
     Route: 048
     Dates: start: 20171116, end: 20171119
  9. RISPERIDONE. [Suspect]
     Active Substance: RISPERIDONE
     Indication: FRONTOTEMPORAL DEMENTIA
     Route: 048
     Dates: start: 20171121, end: 20171122
  10. HALOPERIDOL. [Suspect]
     Active Substance: HALOPERIDOL
     Indication: FRONTOTEMPORAL DEMENTIA
     Route: 048
     Dates: start: 20171116, end: 20171116
  11. HALOPERIDOL. [Suspect]
     Active Substance: HALOPERIDOL
     Indication: FRONTOTEMPORAL DEMENTIA
     Route: 048
     Dates: start: 20171122, end: 20171122
  12. HALOPERIDOL. [Suspect]
     Active Substance: HALOPERIDOL
     Indication: FRONTOTEMPORAL DEMENTIA
     Route: 048
     Dates: start: 20171109, end: 20171109
  13. HALOPERIDOL. [Suspect]
     Active Substance: HALOPERIDOL
     Indication: FRONTOTEMPORAL DEMENTIA
     Route: 048
     Dates: start: 20171110, end: 20171113
  14. RISPERIDONE. [Suspect]
     Active Substance: RISPERIDONE
     Indication: FRONTOTEMPORAL DEMENTIA
     Route: 048
     Dates: start: 20171031, end: 20171031
  15. HALOPERIDOL. [Suspect]
     Active Substance: HALOPERIDOL
     Indication: FRONTOTEMPORAL DEMENTIA
     Route: 048
     Dates: start: 20171115, end: 20171115
  16. TAMSULOSIN [Suspect]
     Active Substance: TAMSULOSIN
     Indication: PRODUCT USED FOR UNKNOWN INDICATION
     Route: 048
     Dates: start: 20100101, end: 20171124

REACTIONS (4)
  - Product use in unapproved indication [Unknown]
  - Adjustment disorder [Fatal]
  - Off label use [Unknown]
  - Sudden death [Fatal]

NARRATIVE: CASE EVENT DATE: 20171031
